FAERS Safety Report 5500325-2 (Version None)
Quarter: 2007Q4

REPORT INFORMATION
  Report Type: 
  Country: None (occurrence: None)
  Receive Date: 20071025
  Receipt Date: 20071012
  Transmission Date: 20080405
  Serious: Yes (Hospitalization)
  Sender: FDA-Public Use
  Company Number: 160746ISR

PATIENT
  Age: 52 Year
  Sex: Female

DRUGS (1)
  1. COPAXONE [Suspect]
     Indication: MULTIPLE SCLEROSIS
     Dosage: 20 MG (20 MG,1 IN 1 D),SUBCUTANEOUS
     Route: 058
     Dates: start: 20070711

REACTIONS (3)
  - CHILLS [None]
  - FEELING COLD [None]
  - OVARIAN DISORDER [None]
